FAERS Safety Report 21703709 (Version 1)
Quarter: 2022Q4

REPORT INFORMATION
  Report Type: Spontaneous
  Country: US (occurrence: US)
  Receive Date: 20221209
  Receipt Date: 20221209
  Transmission Date: 20230113
  Serious: No
  Sender: FDA-Public Use
  Company Number: US-UNITED THERAPEUTICS-UNT-2022-029028

PATIENT
  Sex: Female
  Weight: 77.551 kg

DRUGS (4)
  1. REMODULIN [Suspect]
     Active Substance: TREPROSTINIL
     Indication: Pulmonary arterial hypertension
     Dosage: 0.034 ?G/KG, CONTINUING (PHARMACY FILLED WITH 3 ML PER CASSETTE; RATE OF 35 MCL PER HOUR)
     Route: 058
     Dates: start: 2022
  2. REMODULIN [Suspect]
     Active Substance: TREPROSTINIL
     Dosage: UNK, CONTINUING
     Route: 058
     Dates: start: 20221003
  3. REMODULIN [Suspect]
     Active Substance: TREPROSTINIL
     Dosage: 0.032 ?G/KG, CONTINUING (PHARMACY FILLED WITH 3 ML PER CASSETTE; RATE OF 33 MCL PER HOUR)
     Route: 058
     Dates: start: 2022
  4. TADALAFIL [Concomitant]
     Active Substance: TADALAFIL
     Indication: Product used for unknown indication
     Dosage: UNK
     Route: 065

REACTIONS (6)
  - Device failure [Unknown]
  - Device difficult to use [Unknown]
  - Device connection issue [Unknown]
  - Infusion site haemorrhage [Unknown]
  - Device failure [Recovered/Resolved]
  - Device use issue [Recovered/Resolved]

NARRATIVE: CASE EVENT DATE: 20220101
